FAERS Safety Report 17591334 (Version 1)
Quarter: 2020Q1

REPORT INFORMATION
  Report Type: Spontaneous
  Country: US (occurrence: US)
  Receive Date: 20200327
  Receipt Date: 20200327
  Transmission Date: 20200409
  Serious: Yes (Hospitalization, Other)
  Sender: FDA-Public Use
  Company Number: US-SCIEGEN PHARMACEUTICALS INC-2020SCILIT00069

PATIENT
  Age: 63 Year
  Sex: Female

DRUGS (3)
  1. COLCHICINE. [Interacting]
     Active Substance: COLCHICINE
  2. LAMOTRIGINE TABLETS [Suspect]
     Active Substance: LAMOTRIGINE
  3. IBUPROFEN. [Interacting]
     Active Substance: IBUPROFEN

REACTIONS (1)
  - Pericarditis [Unknown]
